FAERS Safety Report 6681574-7 (Version None)
Quarter: 2010Q2

REPORT INFORMATION
  Report Type: 
  Country: None (occurrence: None)
  Receive Date: 20100414
  Receipt Date: 20100406
  Transmission Date: 20101027
  Serious: Yes (Life-Threatening)
  Sender: FDA-Public Use
  Company Number: DE-SANOFI-AVENTIS-2010SA006334

PATIENT
  Age: 58 Year
  Sex: Female

DRUGS (15)
  1. OXALIPLATIN [Suspect]
     Route: 041
     Dates: start: 20081105, end: 20081105
  2. OXALIPLATIN [Suspect]
     Route: 041
  3. OXALIPLATIN [Suspect]
     Route: 041
  4. BEVACIZUMAB [Suspect]
     Route: 041
  5. BEVACIZUMAB [Suspect]
     Route: 041
     Dates: start: 20081103, end: 20081103
  6. FLUOROURACIL [Suspect]
     Route: 040
  7. FLUOROURACIL [Suspect]
     Route: 041
  8. FLUOROURACIL [Suspect]
     Route: 040
  9. FLUOROURACIL [Suspect]
     Route: 041
  10. FLUOROURACIL [Suspect]
     Route: 040
     Dates: start: 20081105, end: 20081105
  11. FLUOROURACIL [Suspect]
     Route: 041
     Dates: start: 20081105, end: 20081105
  12. FOLINIC ACID [Suspect]
     Route: 065
  13. FOLINIC ACID [Suspect]
     Route: 041
  14. RAMIPRIL [Concomitant]
     Dates: start: 20080901
  15. METOPROLOL SUCCINATE [Concomitant]
     Dates: start: 20080901

REACTIONS (1)
  - HYPERTENSIVE EMERGENCY [None]
